FAERS Safety Report 5854196-5 (Version None)
Quarter: 2008Q3

REPORT INFORMATION
  Report Type: 
  Country: None (occurrence: None)
  Receive Date: 20080822
  Receipt Date: 20080815
  Transmission Date: 20090109
  Serious: Yes (Other)
  Sender: FDA-Public Use
  Company Number: TR-TEVA-176000ISR

PATIENT
  Age: 48 Year

DRUGS (2)
  1. PACLITAXEL [Suspect]
     Indication: OVARIAN CANCER
  2. TOPOTECAN [Suspect]
     Indication: OVARIAN CANCER

REACTIONS (1)
  - LEUKOENCEPHALOPATHY [None]
